FAERS Safety Report 10734885 (Version 2)
Quarter: 2015Q1

REPORT INFORMATION
  Report Type: Spontaneous
  Country: US (occurrence: US)
  Receive Date: 20150123
  Receipt Date: 20150223
  Transmission Date: 20150721
  Serious: No
  Sender: FDA-Public Use
  Company Number: US-CELGENEUS-USA-2014115433

PATIENT
  Sex: Female
  Weight: 80.3 kg

DRUGS (8)
  1. METOPROLOL SUCCINATE. [Concomitant]
     Active Substance: METOPROLOL SUCCINATE
     Route: 048
  2. REVLIMID [Suspect]
     Active Substance: LENALIDOMIDE
     Indication: PLASMA CELL MYELOMA
     Dosage: 25 MILLIGRAM
     Route: 048
     Dates: start: 201407
  3. GABAPENTIN. [Concomitant]
     Active Substance: GABAPENTIN
     Route: 048
  4. ACYCLOVIR. [Concomitant]
     Active Substance: ACYCLOVIR
     Route: 048
  5. MULTIVITAMINS [Concomitant]
     Active Substance: VITAMINS
     Route: 048
  6. DEXAMETHASONE. [Concomitant]
     Active Substance: DEXAMETHASONE
     Route: 048
  7. KLOR-CON [Concomitant]
     Active Substance: POTASSIUM CHLORIDE
     Route: 048
  8. WARFARIN SODIUM. [Concomitant]
     Active Substance: WARFARIN SODIUM
     Route: 048

REACTIONS (1)
  - Adverse event [Unknown]

NARRATIVE: CASE EVENT DATE: 2014
